FAERS Safety Report 21381081 (Version 2)
Quarter: 2022Q4

REPORT INFORMATION
  Report Type: Spontaneous
  Country: US (occurrence: US)
  Receive Date: 20220927
  Receipt Date: 20221005
  Transmission Date: 20230113
  Serious: No
  Sender: FDA-Public Use
  Company Number: US-Calliditas-2022CAL00312

PATIENT
  Age: 33 Year
  Sex: Male

DRUGS (3)
  1. TARPEYO [Suspect]
     Active Substance: BUDESONIDE
     Indication: IgA nephropathy
     Dosage: 16 MG (4 MG CAPSULES) ONCE DAILY
     Route: 048
     Dates: start: 20220812
  2. LISINOPRIL [Concomitant]
     Active Substance: LISINOPRIL
  3. ALLEGRA [Concomitant]
     Active Substance: FEXOFENADINE HYDROCHLORIDE

REACTIONS (2)
  - Fatigue [Recovered/Resolved]
  - Treatment delayed [Recovered/Resolved]

NARRATIVE: CASE EVENT DATE: 20220901
